FAERS Safety Report 5156593-2 (Version None)
Quarter: 2006Q4

REPORT INFORMATION
  Report Type: 
  Country: None (occurrence: None)
  Receive Date: 20061115
  Receipt Date: 20061107
  Transmission Date: 20070319
  Serious: Yes (Hospitalization)
  Sender: FDA-Public Use
  Company Number: 230934

PATIENT
  Age: 42 Year
  Sex: Female

DRUGS (4)
  1. XOLAIR [Suspect]
     Indication: ASTHMA
     Dosage: 300 MG, Q4W, SUBCUTANEOUS
     Route: 058
     Dates: start: 20041001, end: 20060908
  2. ACCOLATE [Concomitant]
  3. ALLEGRA-D 12 HOUR [Concomitant]
  4. QVAR 40 [Concomitant]

REACTIONS (2)
  - ABDOMINAL PAIN [None]
  - LOWER RESPIRATORY TRACT INFECTION [None]
